FAERS Safety Report 23332810 (Version 1)
Quarter: 2023Q4

REPORT INFORMATION
  Report Type: Spontaneous
  Country: US (occurrence: None)
  Receive Date: 20231222
  Receipt Date: 20231222
  Transmission Date: 20240110
  Serious: Yes (Life-Threatening, Hospitalization)
  Sender: FDA-Public Use
  Company Number: None

PATIENT
  Age: 51 Year
  Sex: Male
  Weight: 99.79 kg

DRUGS (1)
  1. SUTAB [Suspect]
     Active Substance: MAGNESIUM SULFATE\POTASSIUM CHLORIDE\SODIUM SULFATE
     Indication: Bowel preparation
     Route: 048
     Dates: start: 20231221, end: 20231221

REACTIONS (8)
  - Hypoaesthesia [None]
  - Sensation of foreign body [None]
  - Swelling face [None]
  - Ocular hyperaemia [None]
  - Dysphagia [None]
  - Dyspnoea [None]
  - Dysphonia [None]
  - Laryngitis [None]

NARRATIVE: CASE EVENT DATE: 20231221
